FAERS Safety Report 4536923-2 (Version None)
Quarter: 2004Q4

REPORT INFORMATION
  Report Type: 
  Country: None (occurrence: None)
  Receive Date: 20041220
  Receipt Date: 20041208
  Transmission Date: 20050328
  Serious: Yes (Disabling, Other)
  Sender: FDA-Public Use
  Company Number: DEU-2004-0001145

PATIENT
  Age: 81 Year
  Sex: Male
  Weight: 75 kg

DRUGS (5)
  1. MORPHINE SULFATE INJ [Suspect]
     Indication: EPIDURAL ANAESTHESIA
     Dosage: 1 MG, SINGLE, OTHER
  2. FENTANYL [Suspect]
     Dosage: SEE TEXT, OTHER
  3. BUPIVACAINE [Suspect]
     Dosage: SEE TEXT, OTHER
  4. THIAMYLAL SODIUM (THIAMYLAL SODIUM) [Concomitant]
  5. LIDOCAINE [Concomitant]

REACTIONS (16)
  - ANAESTHETIC COMPLICATION [None]
  - AREFLEXIA [None]
  - ASTHENIA [None]
  - BLOOD PRESSURE DECREASED [None]
  - DEPRESSED LEVEL OF CONSCIOUSNESS [None]
  - FAECAL INCONTINENCE [None]
  - HYPOAESTHESIA [None]
  - IATROGENIC INJURY [None]
  - MEDICATION ERROR [None]
  - NUCLEAR MAGNETIC RESONANCE IMAGING ABNORMAL [None]
  - PAINFUL RESPONSE TO NORMAL STIMULI [None]
  - PARAPLEGIA [None]
  - POST PROCEDURAL COMPLICATION [None]
  - SENSORY LOSS [None]
  - SPINAL CORD INJURY [None]
  - URINARY INCONTINENCE [None]
